FAERS Safety Report 9342434 (Version 1)
Quarter: 2013Q2

REPORT INFORMATION
  Report Type: Spontaneous
  Country: KR (occurrence: KR)
  Receive Date: 20130611
  Receipt Date: 20130611
  Transmission Date: 20140414
  Serious: Yes (Death)
  Sender: FDA-Public Use
  Company Number: PHHY2013KR057734

PATIENT
  Age: 48 Year
  Sex: Female

DRUGS (2)
  1. PACLITAXEL [Suspect]
     Indication: SARCOMA UTERUS
     Dosage: 175 MG/M2, OVER 3 HOUR
     Route: 042
  2. CARBOPLATIN [Suspect]
     Indication: SARCOMA UTERUS
     Route: 042

REACTIONS (1)
  - Septic shock [Fatal]
